FAERS Safety Report 12134167 (Version 3)
Quarter: 2016Q3

REPORT INFORMATION
  Report Type: Report from Study
  Country: US (occurrence: US)
  Receive Date: 20160301
  Receipt Date: 20160810
  Transmission Date: 20161109
  Serious: Yes (Other)
  Sender: FDA-Public Use
  Company Number: US-ABBVIE-16K-163-1569813-00

PATIENT
  Sex: Female

DRUGS (1)
  1. HUMIRA [Suspect]
     Active Substance: ADALIMUMAB
     Indication: PRODUCT USED FOR UNKNOWN INDICATION
     Route: 058

REACTIONS (6)
  - Pulmonary mass [Unknown]
  - Pruritus [Unknown]
  - Nasal polyps [Unknown]
  - Renal cyst [Unknown]
  - Dry skin [Unknown]
  - Peripheral swelling [Not Recovered/Not Resolved]
